FAERS Safety Report 25049257 (Version 4)
Quarter: 2025Q4

REPORT INFORMATION
  Report Type: Spontaneous
  Country: US (occurrence: US)
  Receive Date: 20250307
  Receipt Date: 20251009
  Transmission Date: 20260117
  Serious: No
  Sender: PFIZER
  Company Number: US-PFIZER INC-202400319122

PATIENT
  Age: 65 Year
  Sex: Female
  Weight: 63.5 kg

DRUGS (4)
  1. TUKYSA [Suspect]
     Active Substance: TUCATINIB
     Indication: Brain neoplasm malignant
     Dosage: 150 MG, 2X/DAY
     Route: 048
     Dates: start: 202409
  2. TUKYSA [Suspect]
     Active Substance: TUCATINIB
     Dosage: 150 MG
  3. TUKYSA [Suspect]
     Active Substance: TUCATINIB
     Dosage: TUKYSA 150 MG, DIRECTIONS TO TAKE TWO TABLETS BY MOUTH TWICE DAILY
     Route: 048
  4. TUKYSA [Suspect]
     Active Substance: TUCATINIB
     Dosage: 150 MG

REACTIONS (4)
  - Speech disorder [Unknown]
  - Headache [Not Recovered/Not Resolved]
  - Off label use [Unknown]
  - Product dose omission issue [Unknown]
